FAERS Safety Report 17909241 (Version 1)
Quarter: 2020Q2

REPORT INFORMATION
  Report Type: Report from Study
  Country: None (occurrence: US)
  Receive Date: 20200618
  Receipt Date: 20200618
  Transmission Date: 20200714
  Serious: Yes (Other)
  Sender: FDA-Public Use
  Company Number: US-ABBVIE-20K-163-3445045-00

PATIENT
  Sex: Female

DRUGS (1)
  1. HUMIRA [Suspect]
     Active Substance: ADALIMUMAB
     Indication: RHEUMATOID ARTHRITIS
     Route: 058

REACTIONS (10)
  - Pneumonia [Unknown]
  - Injection site pain [Unknown]
  - Bronchitis [Unknown]
  - Pulmonary fibrosis [Unknown]
  - Feeling hot [Unknown]
  - Knee operation [Unknown]
  - Asthenia [Unknown]
  - Upper limb fracture [Unknown]
  - Hyperhidrosis [Unknown]
  - Pulmonary thrombosis [Unknown]
